FAERS Safety Report 22360689 (Version 2)
Quarter: 2023Q4

REPORT INFORMATION
  Report Type: Other
  Country: HK (occurrence: None)
  Receive Date: 20230524
  Receipt Date: 20231127
  Transmission Date: 20240110
  Serious: Yes (Other)
  Sender: FDA-Public Use
  Company Number: HK-ROCHE-3355299

PATIENT

DRUGS (4)
  1. ATEZOLIZUMAB [Suspect]
     Active Substance: ATEZOLIZUMAB
     Indication: Hepatocellular carcinoma
     Route: 065
  2. ATEZOLIZUMAB [Suspect]
     Active Substance: ATEZOLIZUMAB
     Indication: Cholangiocarcinoma
  3. BEVACIZUMAB [Suspect]
     Active Substance: BEVACIZUMAB
     Indication: Hepatocellular carcinoma
     Route: 065
  4. BEVACIZUMAB [Suspect]
     Active Substance: BEVACIZUMAB
     Indication: Cholangiocarcinoma

REACTIONS (11)
  - Hypertension [Unknown]
  - Platelet count decreased [Unknown]
  - Autoimmune hepatitis [Unknown]
  - Alanine aminotransferase increased [Unknown]
  - Hyperbilirubinaemia [Unknown]
  - Proteinuria [Unknown]
  - Fatigue [Unknown]
  - Pyrexia [Unknown]
  - Dry skin [Unknown]
  - Arthralgia [Unknown]
  - Off label use [Unknown]
